FAERS Safety Report 18845840 (Version 1)
Quarter: 2021Q1

REPORT INFORMATION
  Report Type: Report from Study
  Country: US (occurrence: US)
  Receive Date: 20210203
  Receipt Date: 20210203
  Transmission Date: 20210419
  Serious: No
  Sender: FDA-Public Use
  Company Number: US-EXELIXIS-CABO-20030767

PATIENT
  Sex: Male

DRUGS (1)
  1. CABOMETYX [Suspect]
     Active Substance: CABOZANTINIB S-MALATE
     Indication: HEPATOCELLULAR CARCINOMA
     Dosage: 60 MG, QD
     Dates: start: 20200528

REACTIONS (8)
  - Erythema [Recovering/Resolving]
  - Increased appetite [Unknown]
  - Pruritus [Recovering/Resolving]
  - Off label use [Unknown]
  - Liver function test increased [Unknown]
  - Drug ineffective [Unknown]
  - Constipation [Recovering/Resolving]
  - Skin exfoliation [Recovering/Resolving]
